FAERS Safety Report 11326870 (Version 1)
Quarter: 2015Q3

REPORT INFORMATION
  Report Type: Spontaneous
  Country: US (occurrence: None)
  Receive Date: 20150730
  Receipt Date: 20150730
  Transmission Date: 20151125
  Serious: No
  Sender: FDA-Public Use
  Company Number: None

PATIENT
  Age: 23 Year
  Sex: Male

DRUGS (1)
  1. FACTOR VIII [Suspect]
     Active Substance: ANTIHEMOPHILIC FACTOR HUMAN
     Indication: HAEMORRHAGE
     Dosage: 4830 UNITS  EVERY 8 HOURS  IV
     Route: 042
     Dates: start: 20141230, end: 20150115

REACTIONS (2)
  - Infusion site extravasation [None]
  - Underdose [None]

NARRATIVE: CASE EVENT DATE: 20150115
